FAERS Safety Report 21459007 (Version 1)
Quarter: 2022Q4

REPORT INFORMATION
  Report Type: Report from Study
  Country: GR (occurrence: GR)
  Receive Date: 20221014
  Receipt Date: 20221014
  Transmission Date: 20230112
  Serious: Yes (Death, Hospitalization, Other)
  Sender: FDA-Public Use
  Company Number: GR-TAKEDA-2022TUS073003

PATIENT
  Sex: Female

DRUGS (1)
  1. HUMAN IMMUNOGLOBULIN G\HYALURONIDASE RECOMBINANT HUMAN [Suspect]
     Active Substance: HUMAN IMMUNOGLOBULIN G\HYALURONIDASE RECOMBINANT HUMAN
     Indication: Immunodeficiency
     Dosage: 2 DOSAGE FORM, MONTHLY
     Route: 058
     Dates: start: 20181102

REACTIONS (4)
  - Chronic obstructive pulmonary disease [Fatal]
  - Septic shock [Fatal]
  - Primary immunodeficiency syndrome [Fatal]
  - Hypersplenism [Fatal]

NARRATIVE: CASE EVENT DATE: 20220504
